FAERS Safety Report 15633580 (Version 3)
Quarter: 2020Q4

REPORT INFORMATION
  Report Type: Report from Study
  Country: ES (occurrence: ES)
  Receive Date: 20181119
  Receipt Date: 20201110
  Transmission Date: 20210113
  Serious: Yes (Hospitalization, Other)
  Sender: FDA-Public Use
  Company Number: ES-SA-2018SA309695

PATIENT

DRUGS (5)
  1. INSULIN RAPID [Concomitant]
     Active Substance: INSULIN NOS
     Indication: TYPE 2 DIABETES MELLITUS
     Dosage: UNK UNK, PRN
     Route: 058
  2. CORTISONE [Suspect]
     Active Substance: CORTISONE
     Indication: PLASMA CELL MYELOMA
     Dosage: MEDICAL REGIMEN
  3. INSULIN GLARGINE [Suspect]
     Active Substance: INSULIN GLARGINE
     Indication: TYPE 2 DIABETES MELLITUS
     Dosage: 34 IU, QD
     Route: 058
     Dates: start: 20180530
  4. METFORMIN [Concomitant]
     Active Substance: METFORMIN HYDROCHLORIDE
     Indication: TYPE 2 DIABETES MELLITUS
     Dosage: 1 DF, BID (1-0-1)
     Route: 048
  5. INSULIN RAPID [Concomitant]
     Active Substance: INSULIN NOS
     Indication: HYPERGLYCAEMIA

REACTIONS (7)
  - Hyperglycaemia [Recovered/Resolved]
  - Hypoglycaemia [Recovered/Resolved]
  - Dizziness [Recovered/Resolved]
  - Hyperglycaemia [Recovered/Resolved]
  - Bronchitis [Recovering/Resolving]
  - Pneumonia [Recovered/Resolved]
  - Tremor [Recovered/Resolved]

NARRATIVE: CASE EVENT DATE: 2018
